FAERS Safety Report 6543366-9 (Version None)
Quarter: 2010Q1

REPORT INFORMATION
  Report Type: 
  Country: None (occurrence: None)
  Receive Date: 20100120
  Receipt Date: 20100111
  Transmission Date: 20100710
  Serious: Yes (Other)
  Sender: FDA-Public Use
  Company Number: US-JNJFOC-20100104843

PATIENT
  Sex: Male
  Weight: 49.9 kg

DRUGS (3)
  1. RISPERDAL [Suspect]
     Indication: TOURETTE'S DISORDER
     Dosage: 1 MG IN MORNING, 1 MG TWICE AT BEDTIME
     Route: 048
  2. STRATTERA [Concomitant]
     Indication: ATTENTION DEFICIT/HYPERACTIVITY DISORDER
     Route: 048
  3. STRATTERA [Concomitant]
     Route: 048

REACTIONS (12)
  - ANXIETY [None]
  - BIPOLAR DISORDER [None]
  - DECREASED APPETITE [None]
  - DIARRHOEA [None]
  - DISORIENTATION [None]
  - DRY MOUTH [None]
  - INSOMNIA [None]
  - OFF LABEL USE [None]
  - PARANOIA [None]
  - RESTLESSNESS [None]
  - SCHIZOPHRENIA [None]
  - VISION BLURRED [None]
